FAERS Safety Report 8108136-9 (Version None)
Quarter: 2012Q1

REPORT INFORMATION
  Report Type: 
  Country: None (occurrence: None)
  Receive Date: 20120202
  Receipt Date: 20120131
  Transmission Date: 20120608
  Serious: Yes (Other)
  Sender: FDA-Public Use
  Company Number: NO-PFIZER INC-2011073704

PATIENT
  Age: 37 Year
  Sex: Male

DRUGS (2)
  1. LYRICA [Suspect]
     Indication: ANXIETY
     Dosage: 300MG 2X/DAY
     Route: 048
     Dates: start: 20100105, end: 20100215
  2. METADON [Concomitant]
     Indication: DRUG WITHDRAWAL SYNDROME
     Dosage: 110MG 1X/DAY
     Route: 048

REACTIONS (1)
  - DRUG WITHDRAWAL SYNDROME [None]
